FAERS Safety Report 5350652-7 (Version None)
Quarter: 2007Q2

REPORT INFORMATION
  Report Type: 
  Country: None (occurrence: None)
  Receive Date: 20070608
  Receipt Date: 20070523
  Transmission Date: 20071010
  Serious: No
  Sender: FDA-Public Use
  Company Number: ES-AVENTIS-200714345GDDC

PATIENT
  Age: 30 Year
  Sex: Male

DRUGS (2)
  1. ARAVA [Suspect]
     Indication: SPONDYLITIS
     Dosage: DOSE: UNK
  2. REMICAD [Concomitant]
     Indication: SPONDYLITIS
     Route: 042

REACTIONS (3)
  - ABORTION INDUCED [None]
  - DRUG EXPOSURE DURING PREGNANCY [None]
  - PREGNANCY OF PARTNER [None]
